FAERS Safety Report 17777718 (Version 1)
Quarter: 2020Q2

REPORT INFORMATION
  Report Type: Spontaneous
  Country: FR (occurrence: FR)
  Receive Date: 20200513
  Receipt Date: 20200513
  Transmission Date: 20200714
  Serious: Yes (Hospitalization)
  Sender: FDA-Public Use
  Company Number: FR-BAYER-2020-076400

PATIENT
  Age: 53 Year
  Sex: Male
  Weight: 58 kg

DRUGS (2)
  1. NEXAVAR [Suspect]
     Active Substance: SORAFENIB
     Indication: HEPATOCELLULAR CARCINOMA
     Dosage: 400 MG PER DAY (200 MG IN MORNING AND 200 MG IN EVENING)
     Route: 048
     Dates: start: 20191218, end: 20200405
  2. NEXAVAR [Suspect]
     Active Substance: SORAFENIB
     Indication: HEPATOCELLULAR CARCINOMA
     Dosage: 400 MG, QD (200 MG IN MORNING AND 200 MG IN EVENING)
     Route: 048
     Dates: start: 20200407, end: 20200421

REACTIONS (1)
  - Hypoglycaemia [Recovered/Resolved]

NARRATIVE: CASE EVENT DATE: 20200404
